FAERS Safety Report 5647811-2 (Version None)
Quarter: 2008Q1

REPORT INFORMATION
  Report Type: 
  Country: None (occurrence: None)
  Receive Date: 20080303
  Receipt Date: 20080205
  Transmission Date: 20080703
  Serious: No
  Sender: FDA-Public Use
  Company Number: US-BOEHRINGER INGELHEIM GMBH, GERMANY-2008-BP-01786BP

PATIENT
  Sex: Female

DRUGS (13)
  1. SPIRIVA [Suspect]
     Indication: CHRONIC OBSTRUCTIVE PULMONARY DISEASE
     Route: 055
     Dates: start: 20080101
  2. METAMUCIL [Concomitant]
  3. CLARITIN [Concomitant]
  4. EVISTA [Concomitant]
     Indication: OSTEOPOROSIS
  5. NEXIUM [Concomitant]
     Indication: GASTROOESOPHAGEAL REFLUX DISEASE
  6. MACRODANTIN [Concomitant]
     Indication: URINARY TRACT INFECTION
  7. HEMATOGEN FORTE [Concomitant]
  8. IRON [Concomitant]
  9. XOPENEX HFA [Concomitant]
  10. TERAZOSIN [Concomitant]
     Indication: URINARY TRACT INFECTION
  11. SINGULAIR [Concomitant]
     Indication: CHRONIC OBSTRUCTIVE PULMONARY DISEASE
  12. VITEYES [Concomitant]
  13. CALCIUM D [Concomitant]

REACTIONS (1)
  - INCREASED BRONCHIAL SECRETION [None]
